FAERS Safety Report 7305134-X (Version None)
Quarter: 2011Q1

REPORT INFORMATION
  Report Type: 
  Country: None (occurrence: None)
  Receive Date: 20110222
  Receipt Date: 20110211
  Transmission Date: 20110831
  Serious: Yes (Other)
  Sender: FDA-Public Use
  Company Number: CA-SANOFI-AVENTIS-2010SA060550

PATIENT
  Age: 61 Year
  Sex: Female

DRUGS (7)
  1. ASPIRIN [Concomitant]
  2. MULTAQ [Suspect]
     Indication: ATRIAL FIBRILLATION
     Route: 048
     Dates: start: 20101003
  3. MESALAMINE [Concomitant]
     Indication: COLITIS
     Route: 048
     Dates: start: 20091001
  4. PSYLLIUM [Concomitant]
  5. TIAZAC [Suspect]
     Indication: ATRIAL FIBRILLATION
     Route: 048
     Dates: start: 20101001
  6. MULTIVITAMIN [Concomitant]
  7. CALCIUM [Concomitant]

REACTIONS (5)
  - MALAISE [None]
  - PARAESTHESIA [None]
  - ATRIAL FIBRILLATION [None]
  - NAUSEA [None]
  - ABDOMINAL PAIN UPPER [None]
